FAERS Safety Report 5517983-9 (Version None)
Quarter: 2007Q4

REPORT INFORMATION
  Report Type: 
  Country: None (occurrence: None)
  Receive Date: 20071113
  Receipt Date: 20071101
  Transmission Date: 20080405
  Serious: Yes (Hospitalization)
  Sender: FDA-Public Use
  Company Number: 239459K07USA

PATIENT
  Age: 45 Year
  Sex: Female
  Weight: 74.8435 kg

DRUGS (3)
  1. REBIF [Suspect]
     Indication: MULTIPLE SCLEROSIS
     Dosage: 44 MCG, 3 IN 1 WEEKS, SUBCUTANEOUS
     Route: 058
     Dates: start: 20070802, end: 20071002
  2. ANTIDIABETICS (ORAL ANTIDIABETES) [Concomitant]
  3. VICODIN [Concomitant]

REACTIONS (11)
  - ABDOMINAL PAIN UPPER [None]
  - CONDITION AGGRAVATED [None]
  - DIARRHOEA [None]
  - IMPAIRED GASTRIC EMPTYING [None]
  - MULTIPLE SCLEROSIS [None]
  - NAUSEA [None]
  - PYREXIA [None]
  - RASH [None]
  - RASH GENERALISED [None]
  - RASH PRURITIC [None]
  - VOMITING [None]
